FAERS Safety Report 13345302 (Version 1)
Quarter: 2017Q1

REPORT INFORMATION
  Report Type: Spontaneous
  Country: TN (occurrence: TN)
  Receive Date: 20170317
  Receipt Date: 20170317
  Transmission Date: 20170428
  Serious: Yes (Other)
  Sender: FDA-Public Use
  Company Number: TN-ACCORD-049052

PATIENT
  Age: 32 Year
  Sex: Male

DRUGS (3)
  1. CLOZAPINE. [Suspect]
     Active Substance: CLOZAPINE
     Indication: SCHIZOPHRENIA
  2. CLOZAPINE. [Suspect]
     Active Substance: CLOZAPINE
     Indication: SCHIZOPHRENIA
     Dosage: DOSE TITRATED TO 300 MG/DAY DURING A 4-WEEK PERIOD
  3. CHLORPROMAZINE. [Concomitant]
     Active Substance: CHLORPROMAZINE
     Indication: INSOMNIA

REACTIONS (4)
  - Parotitis [Recovering/Resolving]
  - Ear pain [Recovering/Resolving]
  - Eosinophilia [Recovering/Resolving]
  - Salivary hypersecretion [Unknown]
